FAERS Safety Report 20913181 (Version 1)
Quarter: 2022Q2

REPORT INFORMATION
  Report Type: Spontaneous
  Country: US (occurrence: US)
  Receive Date: 20220603
  Receipt Date: 20220603
  Transmission Date: 20220721
  Serious: Yes (Hospitalization)
  Sender: FDA-Public Use
  Company Number: US-BRAINTREE LABORATORIES, INC.-2022BTE00190

PATIENT
  Age: 52 Year
  Sex: Male
  Weight: 90.703 kg

DRUGS (3)
  1. SUTAB [Suspect]
     Active Substance: MAGNESIUM SULFATE\POTASSIUM CHLORIDE\SODIUM SULFATE
     Indication: Colonoscopy
     Dosage: 1 X 7 TABLETS, 1X
     Route: 048
     Dates: start: 20220313, end: 20220313
  2. CLARITIN [Concomitant]
     Active Substance: LORATADINE
  3. UNSPECIFIED ACID REFLUX MEDICATION [Concomitant]

REACTIONS (6)
  - Anaphylactic reaction [Recovered/Resolved]
  - Pain in extremity [Recovered/Resolved]
  - Peripheral swelling [Recovered/Resolved]
  - Mydriasis [Recovered/Resolved]
  - Visual impairment [Recovered/Resolved]
  - Photophobia [Not Recovered/Not Resolved]

NARRATIVE: CASE EVENT DATE: 20220301
